FAERS Safety Report 17349193 (Version 4)
Quarter: 2020Q1

REPORT INFORMATION
  Report Type: Report from Study
  Country: SK (occurrence: SK)
  Receive Date: 20200130
  Receipt Date: 20200305
  Transmission Date: 20200409
  Serious: Yes (Death, Life-Threatening, Hospitalization)
  Sender: FDA-Public Use
  Company Number: NVSC2020SK014539

PATIENT
  Age: 76 Year
  Sex: Female

DRUGS (34)
  1. CANAKINUMAB. [Suspect]
     Active Substance: CANAKINUMAB
     Indication: NON-SMALL CELL LUNG CANCER
     Dosage: UNK
     Route: 058
     Dates: start: 20191227, end: 20200120
  2. KALIUM CHLORATUM [Concomitant]
     Active Substance: POTASSIUM CHLORIDE
     Indication: RENAL FAILURE
     Dosage: UNK
     Route: 065
     Dates: start: 20200114, end: 20200120
  3. CONCOR [Concomitant]
     Active Substance: BISOPROLOL FUMARATE
     Indication: HYPERTENSION
     Dosage: UNK
     Route: 065
     Dates: start: 20010101, end: 20200109
  4. COMPARATOR PEMBROLIZUMAB [Suspect]
     Active Substance: PEMBROLIZUMAB
     Indication: NEOPLASM MALIGNANT
     Dosage: 200 MG, Q3W
     Route: 042
     Dates: start: 20191227, end: 20200120
  5. PREDNISON [Suspect]
     Active Substance: PREDNISONE
     Indication: RENAL FAILURE
     Dosage: UNK
     Route: 065
     Dates: start: 20200115, end: 20200119
  6. HIDROCORTISON [Concomitant]
     Active Substance: HYDROCORTISONE
     Indication: GENERAL PHYSICAL CONDITION
     Dosage: UNK
     Route: 065
     Dates: start: 20200119, end: 20200127
  7. COMPARATOR CISPLATIN [Suspect]
     Active Substance: CISPLATIN
     Indication: NON-SMALL CELL LUNG CANCER
     Dosage: 80 MG, Q3W
     Route: 042
     Dates: start: 20191227, end: 20200120
  8. CALTRATE [Concomitant]
     Active Substance: CALCIUM CARBONATE
     Indication: RENAL FAILURE
     Dosage: UNK
     Route: 065
     Dates: start: 20200114, end: 20200119
  9. VASOCARDIN [Concomitant]
     Active Substance: METOPROLOL
     Indication: HYPERTENSION
     Dosage: UNK
     Route: 065
     Dates: start: 20200117, end: 20200119
  10. FENISTIL [Concomitant]
     Active Substance: DIMETHINDENE
     Indication: ERYTHEMA
     Dosage: UNK
     Route: 065
     Dates: start: 20200103, end: 20200108
  11. NORMAL SALINE [Concomitant]
     Active Substance: SODIUM CHLORIDE
     Indication: RENAL FAILURE
  12. HELICID [Concomitant]
     Active Substance: OMEPRAZOLE
     Indication: PROPHYLAXIS
     Dosage: UNK
     Route: 065
     Dates: start: 20200115, end: 20200119
  13. ATACAND [Concomitant]
     Active Substance: CANDESARTAN CILEXETIL
     Indication: HYPERTENSION
     Dosage: UNK
     Route: 065
     Dates: start: 20010101, end: 20200109
  14. PROBIOTIC [Concomitant]
     Active Substance: PROBIOTICS NOS
     Indication: RENAL FAILURE
     Dosage: UNK
     Route: 065
     Dates: start: 20200114, end: 20200119
  15. AMLODIPIN [Concomitant]
     Active Substance: AMLODIPINE BESYLATE
     Indication: HYPERTENSION
     Dosage: UNK
     Route: 065
     Dates: start: 20010110, end: 20200114
  16. CALCIUM [Concomitant]
     Active Substance: CALCIUM
     Indication: RENAL FAILURE
     Dosage: UNK
     Route: 065
     Dates: start: 20200114, end: 20200119
  17. NORMAL SALINE [Concomitant]
     Active Substance: SODIUM CHLORIDE
     Indication: RENAL FAILURE
     Dosage: UNK
     Route: 065
     Dates: start: 20200114, end: 20200127
  18. INSULIN [Concomitant]
     Active Substance: INSULIN NOS
     Indication: DIABETES MELLITUS
     Dosage: UNK
     Route: 065
     Dates: start: 20200115
  19. PIOGLITAZON [Concomitant]
     Indication: DIABETES MELLITUS
     Dosage: UNK
     Route: 065
     Dates: start: 20010101, end: 20200119
  20. CONTROLOC [Concomitant]
     Active Substance: PANTOPRAZOLE SODIUM
     Indication: GENERAL PHYSICAL CONDITION
     Dosage: UNK
     Route: 065
     Dates: start: 20200119, end: 20200127
  21. COMPARATOR PEMETREXED [Suspect]
     Active Substance: PEMETREXED DISODIUM
     Indication: NON-SMALL CELL LUNG CANCER
     Dosage: 830 MG, Q3W
     Route: 042
     Dates: start: 20191227, end: 20200120
  22. REASEC [Concomitant]
     Active Substance: ATROPINE SULFATE\DIPHENOXYLATE HYDROCHLORIDE
     Indication: DIARRHOEA
     Dosage: UNK
     Route: 065
     Dates: start: 20200110, end: 20200113
  23. KALDYUM [Concomitant]
     Active Substance: POTASSIUM CHLORIDE
     Indication: RENAL FAILURE
     Dosage: UNK
     Route: 065
     Dates: start: 20200114, end: 20200119
  24. NORMAL SALINE [Concomitant]
     Active Substance: SODIUM CHLORIDE
     Indication: HYPOTENSION
     Dosage: UNK
     Route: 065
     Dates: start: 20200109, end: 20200109
  25. MILURIT [Concomitant]
     Active Substance: ALLOPURINOL
     Indication: GENERAL PHYSICAL CONDITION
     Dosage: UNK
     Route: 065
     Dates: start: 20090101, end: 20200119
  26. ROSUCARD [Concomitant]
     Active Substance: ROSUVASTATIN CALCIUM
     Indication: HYPERLIPIDAEMIA
     Dosage: UNK
     Route: 065
     Dates: start: 20090101, end: 20200119
  27. KANAVIT [Concomitant]
     Indication: GENERAL PHYSICAL CONDITION
     Dosage: UNK
     Route: 065
     Dates: start: 20191129
  28. GLUCOSE [Concomitant]
     Active Substance: DEXTROSE
     Indication: RENAL FAILURE
     Dosage: UNK
     Route: 065
     Dates: start: 20200114, end: 20200116
  29. VITAMIN B12 [Concomitant]
     Active Substance: CYANOCOBALAMIN
     Indication: GENERAL PHYSICAL CONDITION
     Dosage: UNK
     Route: 065
     Dates: start: 20191001, end: 20200114
  30. FOLIC ACID. [Concomitant]
     Active Substance: FOLIC ACID
     Indication: HYPERCALCAEMIA
     Dosage: UNK
     Route: 065
     Dates: start: 20191203, end: 20200103
  31. PROBIOTIC [Concomitant]
     Active Substance: PROBIOTICS NOS
     Indication: RENAL FAILURE
  32. FRAXIPARIN [Concomitant]
     Active Substance: NADROPARIN CALCIUM
     Indication: VENOUS THROMBOSIS
     Dosage: UNK
     Route: 065
     Dates: start: 20191009, end: 20200120
  33. GLUCOSE [Concomitant]
     Active Substance: DEXTROSE
     Dosage: UNK
     Dates: start: 20200119, end: 20200127
  34. CENTRUM A TO ZINC [Concomitant]
     Active Substance: MINERALS\VITAMINS
     Indication: GENERAL PHYSICAL CONDITION
     Dosage: UNK
     Route: 065
     Dates: start: 20191206, end: 20200119

REACTIONS (1)
  - Pneumonia [Fatal]

NARRATIVE: CASE EVENT DATE: 20200119
